FAERS Safety Report 24303262 (Version 2)
Quarter: 2024Q4

REPORT INFORMATION
  Report Type: Spontaneous
  Country: NL (occurrence: NL)
  Receive Date: 20240910
  Receipt Date: 20241211
  Transmission Date: 20250115
  Serious: Yes (Life-Threatening, Hospitalization, Disabling, Other)
  Sender: TEVA
  Company Number: None

PATIENT
  Age: 61 Year
  Sex: Male
  Weight: 65 kg

DRUGS (7)
  1. MORPHINE [Suspect]
     Active Substance: MORPHINE
     Indication: Product used for unknown indication
     Dosage: DOSAGE: 10 MG/ML INFUSION FLUID, MORFINE INFVLST / BRAND NAME NOT SPECIFIED
     Route: 065
  2. OXAZEPAM [Suspect]
     Active Substance: OXAZEPAM
     Indication: Anxiety
     Dosage: 1 PIECE TWICE A DAY, / BRAND NAME NOT SPECIFIED
     Route: 065
     Dates: start: 20240523
  3. PROPOFOL [Concomitant]
     Active Substance: PROPOFOL
     Indication: Product used for unknown indication
     Dosage: BOLUSES OF 10 -20 MG OCCASIONALLY, INJ.EMULSION / BRAND NAME NOT SPECIFIED
     Route: 065
  4. SUFENTANIL [Concomitant]
     Active Substance: SUFENTANIL
     Indication: Product used for unknown indication
     Dosage: INFUSION FLUID, 5 ?G/ML (MICROGRAMS PER MILLILITER),SUFENTANIL INFVLST 5UG/ML / BRAND NAME NOT SP...
     Route: 065
  5. DEXMEDETOMIDINE [Concomitant]
     Active Substance: DEXMEDETOMIDINE
     Indication: Product used for unknown indication
     Dosage: 8 MCG/ML, INFVLST 4UG/ML / BRAND NAME NOT SPECIFIED
     Route: 065
  6. CLONIDINE [Concomitant]
     Active Substance: CLONIDINE
     Indication: Product used for unknown indication
     Dosage: DOSAGE: 0.01 MG/ML INFUSION FLUID, INFVLST/ BRAND NAME NOT SPECIFIED
     Route: 065
  7. LORAZEPAM [Suspect]
     Active Substance: LORAZEPAM
     Indication: Anxiety
     Dosage: 1 ML 6 TIMES A DAY INJECTION/INFUSE / BRAND NAME NOT SPECIFIED
     Route: 065
     Dates: start: 20240527

REACTIONS (9)
  - Hallucination [Recovering/Resolving]
  - Muscular weakness [Recovering/Resolving]
  - Anxiety [Recovering/Resolving]
  - Respiratory depression [Recovering/Resolving]
  - Asthenia [Recovering/Resolving]
  - Impaired gastric emptying [Unknown]
  - Delirium [Recovered/Resolved]
  - Hypercapnic coma [Recovered/Resolved]
  - Constipation [Unknown]
